FAERS Safety Report 19124583 (Version 1)
Quarter: 2021Q2

REPORT INFORMATION
  Report Type: Spontaneous
  Country: BR (occurrence: BR)
  Receive Date: 20210413
  Receipt Date: 20210413
  Transmission Date: 20210717
  Serious: Yes (Hospitalization, Other)
  Sender: FDA-Public Use
  Company Number: BR-LUPIN PHARMACEUTICALS INC.-2021-04576

PATIENT
  Age: 42 Year
  Sex: Male

DRUGS (10)
  1. LAMIVUDINE. [Suspect]
     Active Substance: LAMIVUDINE
     Indication: ACQUIRED IMMUNODEFICIENCY SYNDROME
     Dosage: 300 MILLIGRAM, QD
     Route: 048
  2. LAMIVUDINE. [Suspect]
     Active Substance: LAMIVUDINE
     Dosage: 50 MILLIGRAM, QD
     Route: 048
  3. SULFADIAZINE. [Concomitant]
     Active Substance: SULFADIAZINE
     Indication: EVIDENCE BASED TREATMENT
     Dosage: 1.5 GRAM, QID ON DAY 1
     Route: 048
  4. SALINE [SODIUM CHLORIDE] [Concomitant]
     Active Substance: SODIUM CHLORIDE
     Indication: EVIDENCE BASED TREATMENT
     Dosage: 1000 MILLILITER, TID
     Route: 042
  5. TENOFOVIR [Suspect]
     Active Substance: TENOFOVIR
     Indication: ACQUIRED IMMUNODEFICIENCY SYNDROME
     Dosage: 300 MILLIGRAM, QD
     Route: 048
  6. CLINDAMYCIN. [Concomitant]
     Active Substance: CLINDAMYCIN
     Indication: EVIDENCE BASED TREATMENT
     Dosage: 600 MILLIGRAM, QID
     Route: 048
  7. PYRIMETHAMINE [Concomitant]
     Active Substance: PYRIMETHAMINE
     Indication: EVIDENCE BASED TREATMENT
     Dosage: 200 MILLIGRAM,LOADING DOSE
     Route: 048
  8. PYRIMETHAMINE [Concomitant]
     Active Substance: PYRIMETHAMINE
     Dosage: 75 MILLIGRAM, QD
     Route: 048
  9. DOLUTEGRAVIR [Suspect]
     Active Substance: DOLUTEGRAVIR
     Indication: ACQUIRED IMMUNODEFICIENCY SYNDROME
     Dosage: 50 MILLIGRAM, QD
     Route: 048
  10. HYDROXYZINE [Concomitant]
     Active Substance: HYDROXYZINE HYDROCHLORIDE
     Indication: RASH
     Dosage: 25 MILLIGRAM, TID
     Route: 048

REACTIONS (1)
  - Hepatitis [Unknown]
